FAERS Safety Report 20455600 (Version 1)
Quarter: 2022Q1

REPORT INFORMATION
  Report Type: Spontaneous
  Country: US (occurrence: None)
  Receive Date: 20220210
  Receipt Date: 20220210
  Transmission Date: 20220423
  Serious: Yes (Hospitalization)
  Sender: FDA-Public Use
  Company Number: None

PATIENT
  Age: 75 Year
  Sex: Female
  Weight: 169 kg

DRUGS (1)
  1. WARFARIN SODIUM [Suspect]
     Active Substance: WARFARIN SODIUM
     Indication: Antiphospholipid syndrome
     Dates: start: 20111005, end: 20220122

REACTIONS (4)
  - Haematoma [None]
  - Fall [None]
  - Abdominal wall haematoma [None]
  - Haemorrhage [None]

NARRATIVE: CASE EVENT DATE: 20220113
